FAERS Safety Report 8109721-0 (Version None)
Quarter: 2012Q1

REPORT INFORMATION
  Report Type: 
  Country: None (occurrence: None)
  Receive Date: 20120202
  Receipt Date: 20120119
  Transmission Date: 20120608
  Serious: No
  Sender: FDA-Public Use
  Company Number: US-AMGEN-USASP2012001790

PATIENT
  Age: 60 Year
  Sex: Female
  Weight: 64.036 kg

DRUGS (11)
  1. SEROQUEL [Concomitant]
     Dosage: 25 MG, QHS
     Route: 048
  2. METHOTREXATE [Concomitant]
     Dosage: 2.5 MG 6 TABLETS ONCE A WEEK
     Route: 048
  3. FOLIC ACID [Concomitant]
     Dosage: 1 MG, QD
     Route: 048
  4. WELLBUTRIN [Concomitant]
     Dosage: 200 MG, QD
     Route: 048
  5. ENBREL [Suspect]
     Indication: PSORIATIC ARTHROPATHY
  6. ENBREL [Suspect]
     Indication: RHEUMATOID ARTHRITIS
     Dosage: 50 MG, QWK
     Route: 058
     Dates: start: 20110915
  7. TREXALL [Concomitant]
     Dosage: 6 MG, UNK
  8. NEXIUM [Concomitant]
     Dosage: 40 MG, QD
     Route: 048
  9. VITAMIN D [Concomitant]
     Dosage: 2000 UNIT, QD
     Route: 048
  10. PRISTIQ [Concomitant]
     Dosage: 50 MG, QD
     Route: 048
  11. MOBIC [Concomitant]
     Dosage: 15 MG, QD
     Route: 048

REACTIONS (9)
  - SCAR [None]
  - FATIGUE [None]
  - RHINORRHOEA [None]
  - HEADACHE [None]
  - COUGH [None]
  - APHONIA [None]
  - ORAL HERPES [None]
  - INCREASED UPPER AIRWAY SECRETION [None]
  - OROPHARYNGEAL PAIN [None]
